FAERS Safety Report 5514727-1 (Version None)
Quarter: 2007Q4

REPORT INFORMATION
  Report Type: 
  Country: None (occurrence: None)
  Receive Date: 20071113
  Receipt Date: 20071101
  Transmission Date: 20080405
  Serious: Yes (Other)
  Sender: FDA-Public Use
  Company Number: JP-PFIZER INC-2007094225

PATIENT
  Age: 53 Year
  Sex: Female

DRUGS (4)
  1. UNASYN [Suspect]
     Indication: PNEUMONIA
     Route: 042
     Dates: start: 20070512, end: 20070514
  2. BROACT [Suspect]
     Indication: PNEUMONIA
     Route: 042
     Dates: start: 20070514, end: 20070516
  3. MEROPEN [Suspect]
     Indication: PNEUMONIA
     Route: 042
     Dates: start: 20070516, end: 20070517
  4. MINOCYCLINE HCL [Suspect]
     Indication: PNEUMONIA
     Route: 042
     Dates: start: 20070516, end: 20070517

REACTIONS (1)
  - PNEUMONIA [None]
